FAERS Safety Report 4430452-2 (Version None)
Quarter: 2004Q3

REPORT INFORMATION
  Report Type: 
  Country: None (occurrence: None)
  Receive Date: 20040721
  Receipt Date: 20030722
  Transmission Date: 20050211
  Serious: Yes (Hospitalization)
  Sender: FDA-Public Use
  Company Number: WAES0304USA01305

PATIENT
  Age: 81 Year
  Sex: Male

DRUGS (3)
  1. VIOXX [Suspect]
     Indication: SPINAL COLUMN STENOSIS
     Dosage: 25 MG/DAILY/PO
     Route: 048
     Dates: start: 20021101, end: 20030101
  2. COUMADIN [Concomitant]
  3. ASPIRIN [Concomitant]

REACTIONS (3)
  - CARCINOMA [None]
  - DUODENAL ULCER [None]
  - GASTROINTESTINAL HAEMORRHAGE [None]
